FAERS Safety Report 6464793-4 (Version None)
Quarter: 2009Q4

REPORT INFORMATION
  Report Type: 
  Country: None (occurrence: None)
  Receive Date: 20091201
  Receipt Date: 20091128
  Transmission Date: 20100525
  Serious: Yes (Death, Hospitalization)
  Sender: FDA-Public Use
  Company Number: PHHY2009MX52533

PATIENT
  Sex: Male

DRUGS (1)
  1. EXFORGE [Suspect]
     Indication: HYPERTENSION
     Dosage: 0.5 TABLET (160/10 MG) PER DAY
     Route: 048
     Dates: start: 20090701, end: 20091101

REACTIONS (4)
  - HYPOTENSION [None]
  - RENAL PAIN [None]
  - TRANSPLANT [None]
  - TRANSPLANT REJECTION [None]
